FAERS Safety Report 13180443 (Version 1)
Quarter: 2017Q1

REPORT INFORMATION
  Report Type: Spontaneous
  Country: IE (occurrence: IE)
  Receive Date: 20170202
  Receipt Date: 20170202
  Transmission Date: 20170428
  Serious: Yes (Other)
  Sender: FDA-Public Use
  Company Number: IE-JNJFOC-20170125054

PATIENT
  Sex: Female

DRUGS (2)
  1. STELARA [Suspect]
     Active Substance: USTEKINUMAB
     Indication: PRODUCT USED FOR UNKNOWN INDICATION
     Dosage: PARTNER^S DOSING
     Route: 065
     Dates: start: 20150608
  2. MELFEN [Concomitant]
     Route: 065

REACTIONS (2)
  - Haemorrhage in pregnancy [Recovered/Resolved]
  - Exposure via father [Unknown]

NARRATIVE: CASE EVENT DATE: 2016
